FAERS Safety Report 26001787 (Version 1)
Quarter: 2025Q4

REPORT INFORMATION
  Report Type: Spontaneous
  Country: EU (occurrence: EU)
  Receive Date: 20251105
  Receipt Date: 20251105
  Transmission Date: 20260117
  Serious: Yes (Hospitalization, Other)
  Sender: ASTELLAS
  Company Number: EU-GILEAD-2025-0734789

PATIENT
  Age: 11 Month
  Sex: Male

DRUGS (1)
  1. AMPHOTERICIN B [Suspect]
     Active Substance: AMPHOTERICIN B
     Indication: Visceral leishmaniasis
     Dosage: 3MG/KG PER DAY ON DAYS 1^-5, 14, AND 21
     Route: 065

REACTIONS (4)
  - Cardiotoxicity [Recovered/Resolved]
  - Supraventricular extrasystoles [Recovered/Resolved]
  - Bradycardia [Recovered/Resolved]
  - Hypokalaemia [Recovered/Resolved]
